FAERS Safety Report 8818971 (Version 2)
Quarter: 2012Q4

REPORT INFORMATION
  Report Type: 
  Country: US (occurrence: US)
  Receive Date: 20121001
  Receipt Date: 20121030
  Transmission Date: 20130627
  Serious: Yes (Other)
  Sender: FDA-Public Use
  Company Number: PHEH2012US018855

PATIENT
  Age: 46 Year
  Sex: Female
  Weight: 55.78 kg

DRUGS (8)
  1. TASIGNA [Suspect]
     Indication: CHRONIC MYELOID LEUKAEMIA
     Dosage: 200 mg, BID
     Route: 048
     Dates: start: 20120806
  2. SYNTHROID [Concomitant]
     Dosage: 175 mg, QD
     Route: 048
  3. BACTRIM [Concomitant]
     Route: 048
  4. MULTIVITAMINS [Concomitant]
     Route: 048
  5. ACAI BERRY [Concomitant]
     Dosage: 500 mg, QD
     Route: 048
  6. PROCHLORPERAZINE MALEATE [Concomitant]
     Indication: NAUSEA
     Dosage: 10 mg, PRN
     Route: 048
  7. VICODIN [Concomitant]
     Indication: PAIN
     Route: 048
  8. ZOFRAN [Concomitant]
     Dosage: 8 mg, BID
     Route: 060

REACTIONS (9)
  - Neoplasm progression [Unknown]
  - Malignant neoplasm progression [Unknown]
  - Dehydration [Recovering/Resolving]
  - Diarrhoea [Recovering/Resolving]
  - Dysphonia [Recovering/Resolving]
  - Fatigue [Not Recovered/Not Resolved]
  - Decreased appetite [Recovering/Resolving]
  - Rash [Recovered/Resolved]
  - Headache [Recovering/Resolving]
